FAERS Safety Report 7125068-3 (Version None)
Quarter: 2010Q4

REPORT INFORMATION
  Report Type: 
  Country: None (occurrence: None)
  Receive Date: 20101129
  Receipt Date: 20101014
  Transmission Date: 20110411
  Serious: Yes (Other)
  Sender: FDA-Public Use
  Company Number: US-AMGEN-USASP2010000490

PATIENT

DRUGS (5)
  1. ENBREL [Suspect]
     Indication: PSORIASIS
     Dates: start: 20041101
  2. ZOCOR [Concomitant]
  3. SYNTHROID [Concomitant]
  4. BENICAR [Concomitant]
  5. HYDROXYZINE [Concomitant]

REACTIONS (1)
  - RETROPERITONEAL FIBROSIS [None]
